FAERS Safety Report 10182753 (Version 1)
Quarter: 2014Q2

REPORT INFORMATION
  Report Type: Spontaneous
  Country: US (occurrence: None)
  Receive Date: 20140519
  Receipt Date: 20140519
  Transmission Date: 20141212
  Serious: Yes (Other)
  Sender: FDA-Public Use
  Company Number: None

PATIENT
  Age: 46 Year
  Sex: Female
  Weight: 63.5 kg

DRUGS (1)
  1. ENBREL [Suspect]
     Indication: NO THERAPEUTIC RESPONSE
     Route: 042
     Dates: start: 20140419, end: 20140510

REACTIONS (5)
  - Injection site swelling [None]
  - Injection site pruritus [None]
  - Injection site erythema [None]
  - Feeling hot [None]
  - Irritability [None]
